FAERS Safety Report 21848757 (Version 1)
Quarter: 2023Q1

REPORT INFORMATION
  Report Type: Report from Study
  Country: US (occurrence: US)
  Receive Date: 20230111
  Receipt Date: 20230111
  Transmission Date: 20230417
  Serious: Yes (Hospitalization)
  Sender: FDA-Public Use
  Company Number: US-BAYER-2023A001955

PATIENT
  Age: 76 Year
  Sex: Male

DRUGS (1)
  1. KERENDIA [Suspect]
     Active Substance: FINERENONE
     Indication: Chronic kidney disease

REACTIONS (1)
  - Illness [Unknown]
